FAERS Safety Report 7574462-5 (Version None)
Quarter: 2011Q2

REPORT INFORMATION
  Report Type: 
  Country: None (occurrence: None)
  Receive Date: 20110627
  Receipt Date: 20110616
  Transmission Date: 20111010
  Serious: Yes (Other)
  Sender: FDA-Public Use
  Company Number: GB-ASTRAZENECA-2011SE30661

PATIENT
  Sex: Female
  Weight: 275 kg

DRUGS (6)
  1. VALPROATE SODIUM [Concomitant]
     Indication: MOOD ALTERED
     Route: 048
  2. SEROQUEL [Suspect]
     Indication: SCHIZOAFFECTIVE DISORDER BIPOLAR TYPE
     Route: 048
     Dates: start: 20100101
  3. SEROQUEL [Suspect]
     Dosage: 100 MG IN THE MORNING AND 250 MG AT NIGHT
     Route: 048
  4. RAMIPRIL [Suspect]
     Indication: RENAL VESSEL DISORDER
     Route: 048
  5. ESCITALOPRAM [Concomitant]
     Indication: DEPRESSION
     Route: 048
  6. ESCITALOPRAM [Concomitant]
     Indication: ANXIETY
     Route: 048

REACTIONS (6)
  - ORTHOSTATIC HYPOTENSION [None]
  - DIZZINESS [None]
  - DIVERTICULITIS [None]
  - DRUG INTOLERANCE [None]
  - ANXIETY [None]
  - DIARRHOEA [None]
